FAERS Safety Report 9270733 (Version 1)
Quarter: 2013Q2

REPORT INFORMATION
  Report Type: Spontaneous
  Country: US (occurrence: US)
  Receive Date: 20130503
  Receipt Date: 20130503
  Transmission Date: 20140414
  Serious: No
  Sender: FDA-Public Use
  Company Number: US-ASTRAZENECA-2012SE38726

PATIENT
  Age: 52 Year
  Sex: Female

DRUGS (2)
  1. SEROQUEL [Suspect]
     Dosage: ONE TO ONE AND HALF TABLETS AT BEDTIME
     Route: 048
  2. SEROQUEL [Suspect]
     Route: 048

REACTIONS (2)
  - Chronic obstructive pulmonary disease [Unknown]
  - Intercepted drug prescribing error [Unknown]
